FAERS Safety Report 25450263 (Version 1)
Quarter: 2025Q2

REPORT INFORMATION
  Report Type: Spontaneous
  Country: US (occurrence: US)
  Receive Date: 20250618
  Receipt Date: 20250618
  Transmission Date: 20250716
  Serious: No
  Sender: LEO PHARM
  Company Number: US-LEO Pharma-380705

PATIENT
  Age: 26 Year
  Sex: Female

DRUGS (1)
  1. ADBRY [Suspect]
     Active Substance: TRALOKINUMAB-LDRM
     Indication: Eczema

REACTIONS (5)
  - Injection site swelling [Unknown]
  - Administration site bruise [Unknown]
  - Injection site erythema [Unknown]
  - Injection site pruritus [Unknown]
  - Injection site warmth [Unknown]
